FAERS Safety Report 4907247-6 (Version None)
Quarter: 2006Q1

REPORT INFORMATION
  Report Type: 
  Country: None (occurrence: None)
  Receive Date: 20060207
  Receipt Date: 20060125
  Transmission Date: 20060701
  Serious: Yes (Disabling)
  Sender: FDA-Public Use
  Company Number: CLOF-10130

PATIENT
  Age: 60 Year
  Sex: Female

DRUGS (26)
  1. CLOFARABINE [Suspect]
     Indication: NON-SMALL CELL LUNG CANCER
     Dates: start: 20051004, end: 20051018
  2. MS04 [Concomitant]
  3. SENOKOT [Concomitant]
  4. XANAX [Concomitant]
  5. PHENERGAN GEL MG [Concomitant]
  6. HYCODAN [Concomitant]
  7. VICODIN [Concomitant]
  8. PHENERGAN SUPPOSITORY [Concomitant]
  9. PHENERGAN GEL [Concomitant]
  10. COMBIVENT INHALER PUFFS [Concomitant]
  11. COMPAZINE [Concomitant]
  12. NEUTRA-PHOS [Concomitant]
  13. OXYGEN [Concomitant]
  14. NORMAL SALINE [Concomitant]
  15. HEPARIN [Concomitant]
  16. TYLENOL (CAPLET) [Concomitant]
  17. PEPCID [Concomitant]
  18. M.V.I. [Concomitant]
  19. PROCTOFOAM [Concomitant]
  20. IBUPROFEN [Concomitant]
  21. AMBIEN [Concomitant]
  22. ALLEGRA [Concomitant]
  23. LEXAPRO [Concomitant]
  24. COUMADIN [Concomitant]
  25. COUMADIN [Concomitant]
  26. TARCEVA [Concomitant]

REACTIONS (4)
  - AMNESIA [None]
  - BRAIN SCAN ABNORMAL [None]
  - CONFUSIONAL STATE [None]
  - DISORIENTATION [None]
